FAERS Safety Report 5376442-7 (Version None)
Quarter: 2007Q2

REPORT INFORMATION
  Report Type: 
  Country: None (occurrence: None)
  Receive Date: 20070628
  Receipt Date: 20070628
  Transmission Date: 20071010
  Serious: Yes (Hospitalization)
  Sender: FDA-Public Use
  Company Number: None

PATIENT
  Sex: Male
  Weight: 100 kg

DRUGS (12)
  1. MERCAPTOPURINE [Suspect]
     Dosage: 3548 MG
     Dates: end: 20070616
  2. METHOTREXATE [Suspect]
     Dosage: 135 MG
     Dates: end: 20070612
  3. VINCRISTINE SULFATE [Suspect]
     Dosage: 2 MG
     Dates: end: 20070522
  4. DEXAMETHASONE [Suspect]
     Dosage: 70 MG
     Dates: end: 20070526
  5. AUGMENTIN '125' [Concomitant]
  6. ACYCLOVIR [Concomitant]
  7. AFRIN [Concomitant]
  8. LOTENSIN [Concomitant]
  9. MAGNESIUM OXIDE [Concomitant]
  10. MEPRON [Concomitant]
  11. MICRO-K [Concomitant]
  12. PROTONIX [Concomitant]

REACTIONS (5)
  - BLOOD CULTURE POSITIVE [None]
  - NAUSEA [None]
  - NEUTROPENIA [None]
  - PYREXIA [None]
  - VOMITING [None]
